FAERS Safety Report 25037709 (Version 1)
Quarter: 2025Q1

REPORT INFORMATION
  Report Type: Spontaneous
  Country: US (occurrence: US)
  Receive Date: 20250304
  Receipt Date: 20250304
  Transmission Date: 20250408
  Serious: Yes (Other)
  Sender: FRESENIUS MEDICAL CARE
  Company Number: US-FMCRTG-FMC-2502-000211

PATIENT
  Age: 82 Year
  Sex: Male
  Weight: 80 kg

DRUGS (1)
  1. DELFLEX [Suspect]
     Active Substance: CALCIUM CHLORIDE\DEXTROSE\MAGNESIUM CHLORIDE\SODIUM CHLORIDE\SODIUM LACTATE
     Indication: End stage renal disease
     Route: 033

REACTIONS (1)
  - Peritonitis [Unknown]

NARRATIVE: CASE EVENT DATE: 20250118
